FAERS Safety Report 16719645 (Version 1)
Quarter: 2019Q3

REPORT INFORMATION
  Report Type: Spontaneous
  Country: FI (occurrence: FI)
  Receive Date: 20190820
  Receipt Date: 20190820
  Transmission Date: 20191005
  Serious: Yes (Life-Threatening)
  Sender: FDA-Public Use
  Company Number: FI-009507513-1908FIN005192

PATIENT
  Age: 88 Year
  Sex: Female

DRUGS (2)
  1. SINEMET [Suspect]
     Active Substance: CARBIDOPA\LEVODOPA
     Indication: TREMOR
     Dosage: UNK
     Route: 048
     Dates: start: 2018, end: 2019
  2. IRON (UNSPECIFIED) [Concomitant]
     Active Substance: IRON

REACTIONS (6)
  - Off label use [Unknown]
  - Protrusion tongue [Unknown]
  - Haemoglobin abnormal [Unknown]
  - Feeding disorder [Recovering/Resolving]
  - General physical health deterioration [Not Recovered/Not Resolved]
  - Muscle twitching [Unknown]

NARRATIVE: CASE EVENT DATE: 2018
